FAERS Safety Report 16460313 (Version 1)
Quarter: 2019Q2

REPORT INFORMATION
  Report Type: Spontaneous
  Country: DE (occurrence: DE)
  Receive Date: 20190620
  Receipt Date: 20190620
  Transmission Date: 20190711
  Serious: Yes (Other)
  Sender: FDA-Public Use
  Company Number: DE-BIOGEN-2019BI00751966

PATIENT
  Sex: Female

DRUGS (1)
  1. TECFIDERA [Suspect]
     Active Substance: DIMETHYL FUMARATE
     Indication: MULTIPLE SCLEROSIS
     Route: 048

REACTIONS (5)
  - Suicidal ideation [Not Recovered/Not Resolved]
  - Homicidal ideation [Not Recovered/Not Resolved]
  - Headache [Not Recovered/Not Resolved]
  - Endocrine disorder [Not Recovered/Not Resolved]
  - Depressive symptom [Not Recovered/Not Resolved]
